FAERS Safety Report 5405940-2 (Version None)
Quarter: 2007Q3

REPORT INFORMATION
  Report Type: 
  Country: None (occurrence: None)
  Receive Date: 20070806
  Receipt Date: 20070730
  Transmission Date: 20080115
  Serious: Yes (Hospitalization, Other)
  Sender: FDA-Public Use
  Company Number: US-AMGEN-US235455

PATIENT
  Age: 61 Year
  Sex: Male
  Weight: 79.9 kg

DRUGS (16)
  1. ARANESP [Suspect]
     Indication: RENAL FAILURE CHRONIC
     Route: 058
     Dates: start: 20061010, end: 20070302
  2. ARANESP [Suspect]
     Route: 058
     Dates: start: 20070302, end: 20070413
  3. ARANESP [Suspect]
     Route: 058
     Dates: start: 20070413, end: 20070525
  4. CELLCEPT [Concomitant]
     Route: 065
  5. NEORAL [Concomitant]
     Route: 065
  6. NEORAL [Concomitant]
     Route: 065
  7. MINOXIDIL [Concomitant]
     Route: 065
  8. LASIX [Concomitant]
     Route: 065
  9. NADOLOL [Concomitant]
     Route: 065
  10. ZETIA [Concomitant]
     Route: 065
  11. ALPHAGAN [Concomitant]
     Route: 047
  12. BENICAR [Concomitant]
     Route: 065
  13. AZATHIOPRINE [Concomitant]
     Route: 065
  14. CRESTOR [Concomitant]
     Route: 065
  15. TRAZODONE HCL [Concomitant]
     Route: 065
  16. FOSAMAX [Concomitant]
     Route: 065

REACTIONS (4)
  - ACUTE PRERENAL FAILURE [None]
  - DERMATITIS EXFOLIATIVE [None]
  - HYPOTENSION [None]
  - URTICARIA [None]
